FAERS Safety Report 8469484-6 (Version None)
Quarter: 2012Q2

REPORT INFORMATION
  Report Type: 
  Country: None (occurrence: None)
  Receive Date: 20120626
  Receipt Date: 20120618
  Transmission Date: 20120825
  Serious: Yes (Death, Hospitalization)
  Sender: FDA-Public Use
  Company Number: US-ACTELION-A-US2011-51636

PATIENT

DRUGS (4)
  1. ADCIRCA [Concomitant]
  2. COUMADIN [Concomitant]
  3. TRACLEER [Suspect]
     Indication: PULMONARY ARTERIAL HYPERTENSION
     Dosage: UNK MG, UNK
     Route: 048
     Dates: start: 20070105
  4. LANOXIN [Concomitant]

REACTIONS (6)
  - CONDITION AGGRAVATED [None]
  - GOUT [None]
  - PAIN [None]
  - BLOOD POTASSIUM INCREASED [None]
  - WEIGHT BEARING DIFFICULTY [None]
  - DEATH [None]
